FAERS Safety Report 10244798 (Version 1)
Quarter: 2014Q2

REPORT INFORMATION
  Report Type: Spontaneous
  Country: US (occurrence: US)
  Receive Date: 20140618
  Receipt Date: 20140618
  Transmission Date: 20141212
  Serious: Yes (Other)
  Sender: FDA-Public Use
  Company Number: US-PFIZER INC-2014165951

PATIENT
  Age: 20 Year
  Sex: Male
  Weight: 68.03 kg

DRUGS (1)
  1. VIAGRA [Suspect]
     Indication: ERECTILE DYSFUNCTION
     Dosage: 2 DF (TOOK 2 PILLS)
     Dates: start: 20140616

REACTIONS (2)
  - Erection increased [Not Recovered/Not Resolved]
  - Painful erection [Not Recovered/Not Resolved]
